FAERS Safety Report 9543238 (Version 1)
Quarter: 2013Q3

REPORT INFORMATION
  Report Type: Spontaneous
  Country: CA (occurrence: CA)
  Receive Date: 20130923
  Receipt Date: 20130923
  Transmission Date: 20140515
  Serious: Yes (Other)
  Sender: FDA-Public Use
  Company Number: CA-BRACCO-000700

PATIENT
  Age: 38 Year
  Sex: Female

DRUGS (1)
  1. BARIUM SULPHATE [Suspect]
     Indication: BARIUM ENEMA
     Route: 067

REACTIONS (3)
  - Incorrect route of drug administration [Recovered/Resolved]
  - Abdominal pain [Recovered/Resolved]
  - Abdominal tenderness [Recovered/Resolved]
